FAERS Safety Report 4832612-5 (Version None)
Quarter: 2005Q4

REPORT INFORMATION
  Report Type: 
  Country: None (occurrence: None)
  Receive Date: 20051121
  Receipt Date: 20051109
  Transmission Date: 20060501
  Serious: Yes (Death)
  Sender: FDA-Public Use
  Company Number: US-JNJFOC-20051102846

PATIENT
  Sex: Male

DRUGS (4)
  1. INFLIXIMAB [Suspect]
     Indication: RHEUMATOID ARTHRITIS
     Route: 042
  2. DIAZIDE [Concomitant]
  3. PRINIVIL [Concomitant]
  4. FOLIC ACID [Concomitant]

REACTIONS (1)
  - LUNG CANCER METASTATIC [None]
